FAERS Safety Report 6515442-8 (Version None)
Quarter: 2009Q4

REPORT INFORMATION
  Report Type: 
  Country: None (occurrence: None)
  Receive Date: 20091223
  Receipt Date: 20091215
  Transmission Date: 20100525
  Serious: Yes (Other)
  Sender: FDA-Public Use
  Company Number: BR-ROCHE-675232

PATIENT
  Age: 33 Year
  Sex: Female

DRUGS (1)
  1. ROACUTAN [Suspect]
     Indication: DRUG USE FOR UNKNOWN INDICATION
     Dosage: ADMINISTERED IRREGULARLY, 10 MG/10 DAYS OR 10 MG/MONTH
     Route: 048
     Dates: start: 20060101, end: 20090901

REACTIONS (1)
  - ABORTION SPONTANEOUS [None]
